FAERS Safety Report 4939171-7 (Version None)
Quarter: 2006Q1

REPORT INFORMATION
  Report Type: 
  Country: None (occurrence: None)
  Receive Date: 20060309
  Receipt Date: 20060309
  Transmission Date: 20060701
  Serious: Yes (Hospitalization, Other)
  Sender: FDA-Public Use
  Company Number: None

PATIENT
  Sex: Male
  Weight: 78.9 kg

DRUGS (12)
  1. CISPLATIN [Suspect]
     Indication: NEOPLASM
     Dosage: 34 MG
     Dates: start: 20050912
  2. GEMCITABINE [Suspect]
     Dosage: 1950 MG
     Dates: start: 20060130
  3. TAXOL [Suspect]
     Dosage: 48 MG
     Dates: start: 20050912
  4. ASPIRIN [Concomitant]
  5. ATENOLOL [Concomitant]
  6. SDN 30 [Concomitant]
  7. LIPITOR [Concomitant]
  8. NTG-SPRAY [Concomitant]
  9. RANITIDINE [Concomitant]
  10. COMPAZINE [Concomitant]
  11. COUMADIN [Concomitant]
  12. ZOFRAN [Concomitant]

REACTIONS (4)
  - BACTERAEMIA [None]
  - MUCOSAL INFLAMMATION [None]
  - POLLAKIURIA [None]
  - RENAL IMPAIRMENT [None]
